FAERS Safety Report 5917184-6 (Version None)
Quarter: 2008Q4

REPORT INFORMATION
  Report Type: 
  Country: None (occurrence: None)
  Receive Date: 20081014
  Receipt Date: 20081010
  Transmission Date: 20090506
  Serious: Yes (Hospitalization)
  Sender: FDA-Public Use
  Company Number: GB-JNJFOC-20081002574

PATIENT
  Age: 41 Year
  Sex: Male

DRUGS (4)
  1. ITRACONAZOLE [Suspect]
     Indication: DRUG USE FOR UNKNOWN INDICATION
     Route: 065
  2. OMEPRAZOLE [Interacting]
     Indication: DRUG USE FOR UNKNOWN INDICATION
  3. VORICONAZOLE [Interacting]
     Indication: DRUG USE FOR UNKNOWN INDICATION
  4. AMPHOTERICIN B [Concomitant]

REACTIONS (4)
  - DRUG INTERACTION [None]
  - DRUG INTOLERANCE [None]
  - LEFT VENTRICULAR DYSFUNCTION [None]
  - NEUTROPENIA [None]
